FAERS Safety Report 9815714 (Version 2)
Quarter: 2014Q1

REPORT INFORMATION
  Report Type: Spontaneous
  Country: IT (occurrence: None)
  Receive Date: 20140110
  Receipt Date: 20140306
  Transmission Date: 20141002
  Serious: Yes (Hospitalization)
  Sender: FDA-Public Use
  Company Number: AUR-APL-2014-00247

PATIENT
  Age: 60 Year
  Sex: Female
  Weight: 65 kg

DRUGS (3)
  1. ATENOLOL [Suspect]
     Indication: PRODUCT USED FOR UNKNOWN INDICATION
     Route: 048
     Dates: start: 20130101, end: 20131113
  2. ETILTOX [Suspect]
     Indication: ALCOHOLISM
     Route: 048
     Dates: start: 20130801, end: 20131113
  3. DELORAZEPAM (DELORAZEPAM) [Concomitant]

REACTIONS (6)
  - Hypotension [None]
  - Hypothermia [None]
  - Syncope [None]
  - Blood creatinine increased [None]
  - Blood alcohol increased [None]
  - Drug interaction [None]
